FAERS Safety Report 7964941-0 (Version None)
Quarter: 2011Q4

REPORT INFORMATION
  Report Type: 
  Country: None (occurrence: None)
  Receive Date: 20111208
  Receipt Date: 20111208
  Transmission Date: 20120403
  Serious: Yes (Hospitalization, Other)
  Sender: FDA-Public Use
  Company Number: None

PATIENT
  Age: 66 Year
  Sex: Female
  Weight: 73.481 kg

DRUGS (1)
  1. CLINDAMYCIN [Suspect]
     Indication: TOOTH DISORDER
     Dosage: 1
     Dates: start: 20110912, end: 20110919

REACTIONS (3)
  - COLITIS [None]
  - ABDOMINAL PAIN [None]
  - DIARRHOEA [None]
